FAERS Safety Report 6390671-5 (Version None)
Quarter: 2009Q4

REPORT INFORMATION
  Report Type: 
  Country: None (occurrence: None)
  Receive Date: 20091006
  Receipt Date: 20090925
  Transmission Date: 20100525
  Serious: Yes (Life-Threatening, Hospitalization)
  Sender: FDA-Public Use
  Company Number: IT-ELI_LILLY_AND_COMPANY-IT200901003432

PATIENT
  Sex: Male

DRUGS (5)
  1. CIALIS [Suspect]
     Dosage: 30 MG (HALF A 20MG TABLET + ENTIRE 20MG TABLET), IN ONE DAY
     Route: 048
  2. CIALIS [Suspect]
     Dosage: 20 MG, ONE TABLET
  3. TORVAST [Concomitant]
     Indication: HYPERCHOLESTEROLAEMIA
  4. ANTIHYPERTENSIVES [Concomitant]
     Indication: HYPERTENSION
  5. ANTIDEPRESSANTS [Concomitant]
     Indication: DEPRESSION

REACTIONS (3)
  - CEREBRAL HAEMORRHAGE [None]
  - DRUG INEFFECTIVE [None]
  - HYPERTENSION [None]
